FAERS Safety Report 4865290-X (Version None)
Quarter: 2005Q4

REPORT INFORMATION
  Report Type: 
  Country: None (occurrence: None)
  Receive Date: 20051223
  Receipt Date: 20051213
  Transmission Date: 20060501
  Serious: Yes (Other)
  Sender: FDA-Public Use
  Company Number: DE-SANOFI-SYNTHELABO-A01200508723

PATIENT
  Sex: Male

DRUGS (2)
  1. CLOPIDOGREL BISULFATE [Suspect]
     Indication: DRUG USE FOR UNKNOWN INDICATION
     Dosage: UNK
     Route: 048
  2. CLOPIDOGREL BISULFATE [Suspect]
     Dosage: UNK
     Route: 048

REACTIONS (2)
  - DELUSION [None]
  - HALLUCINATION, VISUAL [None]
